FAERS Safety Report 5309084-X (Version None)
Quarter: 2007Q2

REPORT INFORMATION
  Report Type: 
  Country: None (occurrence: None)
  Receive Date: 20070420
  Receipt Date: 20070411
  Transmission Date: 20071010
  Serious: Yes (Other)
  Sender: FDA-Public Use
  Company Number: 155212ISR

PATIENT
  Age: 71 Year
  Sex: Male

DRUGS (5)
  1. PRAVASTATIN [Suspect]
     Indication: HYPERCHOLESTEROLAEMIA
     Dosage: 20 MG
     Dates: start: 19930101, end: 20070226
  2. METFORMIN HCL [Suspect]
     Indication: DIABETES MELLITUS
     Dosage: 2550 MG (850 MG, 3 IN 1 D)
     Dates: start: 20070202
  3. GLICLAZIDE [Suspect]
     Indication: DIABETES MELLITUS
     Dosage: 240 MG (80 MG, 3 IN 1 DAY)
     Dates: start: 19930101
  4. NIFEDIPINE [Suspect]
     Dosage: 30 MG (30 MG, 1 IN 1 D)
     Dates: start: 19930101
  5. MIGRAFIN [Suspect]
     Indication: PROPHYLAXIS
     Dosage: 1 DF ( 1 IN 1 D)
     Dates: start: 19930101

REACTIONS (1)
  - DEMENTIA [None]
